FAERS Safety Report 13990021 (Version 1)
Quarter: 2017Q3

REPORT INFORMATION
  Report Type: Spontaneous
  Country: US (occurrence: US)
  Receive Date: 20170920
  Receipt Date: 20170920
  Transmission Date: 20171128
  Serious: No
  Sender: FDA-Public Use
  Company Number: US-GLAXOSMITHKLINE-US2017142729

PATIENT
  Age: 69 Year
  Sex: Female

DRUGS (2)
  1. DICLOFENAC SODIUM GEL [Suspect]
     Active Substance: DICLOFENAC SODIUM
     Indication: PROCEDURAL PAIN
     Dosage: UNK
     Dates: start: 2016
  2. DICLOFENAC SODIUM GEL [Suspect]
     Active Substance: DICLOFENAC SODIUM
     Dosage: UNK
     Route: 061
     Dates: start: 20170912

REACTIONS (4)
  - Off label use [Unknown]
  - Drug administered at inappropriate site [Unknown]
  - Drug effective for unapproved indication [Unknown]
  - Expired product administered [Unknown]
